FAERS Safety Report 14539809 (Version 1)
Quarter: 2018Q1

REPORT INFORMATION
  Report Type: Spontaneous
  Country: US (occurrence: US)
  Receive Date: 20180215
  Receipt Date: 20180215
  Transmission Date: 20180509
  Serious: Yes (Hospitalization)
  Sender: FDA-Public Use
  Company Number: None

PATIENT
  Sex: Female

DRUGS (16)
  1. POTASSIUM [Concomitant]
     Active Substance: POTASSIUM
  2. BISOPROLOL [Concomitant]
     Active Substance: BISOPROLOL
  3. XOLAIR [Suspect]
     Active Substance: OMALIZUMAB
     Indication: ASTHMA
     Dosage: ?          OTHER FREQUENCY:Q 2 WEEKS;?
     Route: 058
     Dates: start: 20100819
  4. BENEFIBER [Concomitant]
     Active Substance: STARCH, WHEAT
  5. IRON [Concomitant]
     Active Substance: IRON
  6. FUROSEMIDE. [Concomitant]
     Active Substance: FUROSEMIDE
  7. ROBINUL [Concomitant]
     Active Substance: GLYCOPYRROLATE
  8. METOLAZONE. [Concomitant]
     Active Substance: METOLAZONE
  9. FLONASE [Concomitant]
     Active Substance: FLUTICASONE PROPIONATE
  10. MAGNESIUM [Concomitant]
     Active Substance: MAGNESIUM
  11. GLIPIZIDE. [Concomitant]
     Active Substance: GLIPIZIDE
  12. ELIQUIS [Concomitant]
     Active Substance: APIXABAN
  13. SINGULAIR [Concomitant]
     Active Substance: MONTELUKAST SODIUM
  14. SIMVASTATIN. [Concomitant]
     Active Substance: SIMVASTATIN
  15. MIRALAX [Concomitant]
     Active Substance: POLYETHYLENE GLYCOL 3350
  16. ZINC. [Concomitant]
     Active Substance: ZINC

REACTIONS (1)
  - Hospitalisation [None]
